FAERS Safety Report 8856963 (Version 3)
Quarter: 2013Q1

REPORT INFORMATION
  Report Type: Spontaneous
  Country: US (occurrence: None)
  Receive Date: 20121015
  Receipt Date: 20130107
  Transmission Date: 20140127
  Serious: Yes (Other)
  Sender: FDA-Public Use
  Company Number: 2012033238

PATIENT
  Age: 21 Year
  Sex: Female
  Weight: 71.67 kg

DRUGS (14)
  1. PRIVIGEN [Suspect]
     Indication: HYPOGAMMAGLOBULINAEMIA
     Dosage: (1X/4 WEEKS, 5 G AT 45 ML/HR FOR 31 MINUTES AND 90ML/HR FOR 251 MINUTES)
     Route: 042
     Dates: start: 20120725
  2. PRIVIGEN [Suspect]
     Indication: IMMUNE SYSTEM DISORDER
     Dosage: (1X/4 WEEKS, 5 G AT 45 ML/HR FOR 31 MINUTES AND 90ML/HR FOR 251 MINUTES)
     Route: 042
     Dates: start: 20120725
  3. PRIVIGEN [Suspect]
     Indication: RESPIRATORY DISORDER
     Dosage: (1X/4 WEEKS, 5 G AT 45 ML/HR FOR 31 MINUTES AND 90ML/HR FOR 251 MINUTES)
     Route: 042
     Dates: start: 20120725
  4. PULMICORT (BUDESONIDE) [Concomitant]
  5. ALBUTEROL (SALBUTAMOL) [Concomitant]
  6. ACETAMINOPHEN (PARACETAMOL) [Concomitant]
  7. DIPHENHYDRAMINE [Concomitant]
  8. HEPARIN [Concomitant]
  9. NORMAL SALINE (SODIUM CHLORIDE) [Concomitant]
  10. SODIUM CHLORIDE [Concomitant]
  11. EPI-PEN [Concomitant]
  12. ALLEGRA-D [Concomitant]
  13. IBUPROFEN [Concomitant]
  14. ZOLOFT [Concomitant]

REACTIONS (9)
  - Meningitis aseptic [None]
  - Bronchitis [None]
  - Off label use [None]
  - Upper respiratory tract infection [None]
  - Sinusitis [None]
  - Headache [None]
  - Pain [None]
  - Nuchal rigidity [None]
  - Fatigue [None]
